FAERS Safety Report 11092054 (Version 1)
Quarter: 2015Q2

REPORT INFORMATION
  Report Type: Spontaneous
  Country: JP (occurrence: JP)
  Receive Date: 20150505
  Receipt Date: 20150505
  Transmission Date: 20150821
  Serious: Yes (Death)
  Sender: FDA-Public Use
  Company Number: JP-INTERMUNE, INC.-201504IM014849

PATIENT
  Sex: Male

DRUGS (3)
  1. PIRESPA (PIRFENIDONE) [Suspect]
     Active Substance: PIRFENIDONE
     Indication: IDIOPATHIC PULMONARY FIBROSIS
     Dosage: 600 MG
     Route: 048
     Dates: start: 201410, end: 201411
  2. PIRESPA (PIRFENIDONE) [Suspect]
     Active Substance: PIRFENIDONE
     Dosage: 1200 MG
     Route: 048
     Dates: start: 201411, end: 20150421
  3. OXYGEN. [Concomitant]
     Active Substance: OXYGEN

REACTIONS (1)
  - Pneumothorax [Fatal]

NARRATIVE: CASE EVENT DATE: 20150418
